FAERS Safety Report 11184951 (Version 4)
Quarter: 2015Q3

REPORT INFORMATION
  Report Type: Spontaneous
  Country: US (occurrence: US)
  Receive Date: 20150612
  Receipt Date: 20150831
  Transmission Date: 20151125
  Serious: Yes (Death, Hospitalization)
  Sender: FDA-Public Use
  Company Number: US-ACTELION-A-NJ2015-119038

PATIENT
  Age: 80 Year
  Sex: Male

DRUGS (8)
  1. MV [Concomitant]
  2. MYCOPHENOLATE MOFETIL. [Concomitant]
     Active Substance: MYCOPHENOLATE MOFETIL
  3. FOLIC ACID W/VITAMIN B12 [Concomitant]
  4. SIMVASTATIN. [Concomitant]
     Active Substance: SIMVASTATIN
  5. SILDENAFIL. [Concomitant]
     Active Substance: SILDENAFIL
  6. OPSUMIT [Suspect]
     Active Substance: MACITENTAN
     Indication: PULMONARY ARTERIAL HYPERTENSION
     Dosage: 10 MG, QD
     Route: 048
     Dates: start: 20150205, end: 20150522
  7. PLAVIX [Concomitant]
     Active Substance: CLOPIDOGREL BISULFATE
  8. ASPIRIN. [Concomitant]
     Active Substance: ASPIRIN

REACTIONS (7)
  - Pulmonary oedema [Unknown]
  - Clostridium difficile infection [Unknown]
  - Diarrhoea [Unknown]
  - Respiratory failure [Fatal]
  - Cardiac failure [Unknown]
  - Lung disorder [Unknown]
  - Pulmonary hypertension [Unknown]

NARRATIVE: CASE EVENT DATE: 20150522
